FAERS Safety Report 14246781 (Version 1)
Quarter: 2017Q4

REPORT INFORMATION
  Report Type: Spontaneous
  Country: US (occurrence: US)
  Receive Date: 20171204
  Receipt Date: 20171204
  Transmission Date: 20180321
  Serious: No
  Sender: FDA-Public Use
  Company Number: US-PFIZER INC-2017516914

PATIENT
  Age: 69 Year
  Sex: Female

DRUGS (3)
  1. GABAPENTIN. [Suspect]
     Active Substance: GABAPENTIN
     Indication: NEUROPATHY PERIPHERAL
     Dosage: 100 MG, UNK
     Route: 048
  2. GABAPENTIN. [Suspect]
     Active Substance: GABAPENTIN
     Dosage: 1800 MG, DAILY
     Route: 048
  3. GABAPENTIN. [Suspect]
     Active Substance: GABAPENTIN
     Dosage: 1200 MG, DAILY (ONE CAPSULE WITH BREAKFAST, ONE CAPSULE WITH LUNCH AND TWO CAPSULES WITH DINNER)
     Route: 048

REACTIONS (4)
  - Drug ineffective [Unknown]
  - Sedation [Unknown]
  - Somnolence [Unknown]
  - Pain [Unknown]
